FAERS Safety Report 24939597 (Version 1)
Quarter: 2025Q1

REPORT INFORMATION
  Report Type: Spontaneous
  Country: BR (occurrence: BR)
  Receive Date: 20250207
  Receipt Date: 20250207
  Transmission Date: 20250408
  Serious: Yes (Other)
  Sender: NOVO NORDISK
  Company Number: BR-NOVOPROD-1360462

PATIENT
  Age: 738 Month
  Sex: Male

DRUGS (2)
  1. XULTOPHY 100/3.6 [Suspect]
     Active Substance: INSULIN DEGLUDEC\LIRAGLUTIDE
     Indication: Diabetes mellitus
  2. XULTOPHY 100/3.6 [Suspect]
     Active Substance: INSULIN DEGLUDEC\LIRAGLUTIDE
     Dosage: 16 IU, QD

REACTIONS (3)
  - Eye disorder [Unknown]
  - Visual impairment [Recovered/Resolved]
  - Blood glucose increased [Unknown]
